FAERS Safety Report 18641138 (Version 1)
Quarter: 2020Q4

REPORT INFORMATION
  Report Type: Spontaneous
  Country: FR (occurrence: FR)
  Receive Date: 20201221
  Receipt Date: 20201221
  Transmission Date: 20210114
  Serious: Yes (Hospitalization)
  Sender: FDA-Public Use
  Company Number: FR-TEVA-2020-FR-1858251

PATIENT
  Age: 67 Year
  Sex: Male
  Weight: 80 kg

DRUGS (6)
  1. IRBESARTAN. [Suspect]
     Active Substance: IRBESARTAN
     Indication: HYPERTENSION
     Dosage: 150MILLIGRAM
     Route: 048
  2. XATRAL LP 10 MG, COMPRIME A LIBERATION PROLONGEE [Concomitant]
     Active Substance: ALFUZOSIN
  3. DIFFU K [Concomitant]
     Active Substance: POTASSIUM CHLORIDE
  4. HYDROCHLOROTHIAZIDE. [Suspect]
     Active Substance: HYDROCHLOROTHIAZIDE
     Indication: HYPERTENSION
     Dosage: 25MILLIGRAM
     Route: 048
     Dates: end: 20200617
  5. NALTREXONE MYLAN 50 MG, COMPRIME PELLICULE SECABLE [Concomitant]
  6. SERESTA 10 MG, COMPRIME [Concomitant]
     Active Substance: OXAZEPAM

REACTIONS (2)
  - Hypotension [Recovered/Resolved]
  - Hyponatraemia [Recovered/Resolved]

NARRATIVE: CASE EVENT DATE: 20200617
